FAERS Safety Report 5696280-5 (Version None)
Quarter: 2008Q2

REPORT INFORMATION
  Report Type: 
  Country: None (occurrence: None)
  Receive Date: 20080407
  Receipt Date: 20080327
  Transmission Date: 20081010
  Serious: Yes (Hospitalization, Other)
  Sender: FDA-Public Use
  Company Number: US-ELI_LILLY_AND_COMPANY-US200803006397

PATIENT
  Sex: Female

DRUGS (2)
  1. FORTEO [Suspect]
     Dosage: UNK, UNK
     Dates: start: 20070501
  2. CALCIUM [Concomitant]

REACTIONS (4)
  - HIP FRACTURE [None]
  - MALAISE [None]
  - MOBILITY DECREASED [None]
  - PAIN [None]
